FAERS Safety Report 12225739 (Version 1)
Quarter: 2016Q1

REPORT INFORMATION
  Report Type: Spontaneous
  Country: US (occurrence: None)
  Receive Date: 20160330
  Receipt Date: 20160330
  Transmission Date: 20160526
  Serious: No
  Sender: FDA-Public Use
  Company Number: None

PATIENT
  Sex: Male

DRUGS (2)
  1. GLIPIZIDE. [Suspect]
     Active Substance: GLIPIZIDE
  2. HUMULIN R [Suspect]
     Active Substance: INSULIN HUMAN

REACTIONS (6)
  - Nasopharyngitis [None]
  - Bronchitis [None]
  - Ear infection [None]
  - Sinusitis [None]
  - Blood glucose increased [None]
  - Drug effect decreased [None]
